FAERS Safety Report 15254534 (Version 5)
Quarter: 2019Q3

REPORT INFORMATION
  Report Type: Spontaneous
  Country: US (occurrence: US)
  Receive Date: 20180808
  Receipt Date: 20190917
  Transmission Date: 20191004
  Serious: No
  Sender: FDA-Public Use
  Company Number: US-BIOGEN-2018BI00618585

PATIENT
  Age: 35 Year
  Sex: Female

DRUGS (4)
  1. TECFIDERA [Suspect]
     Active Substance: DIMETHYL FUMARATE
     Dosage: QHS?MAINTENANCE DOSE
     Route: 050
     Dates: start: 20180724
  2. TECFIDERA [Suspect]
     Active Substance: DIMETHYL FUMARATE
     Dosage: QHS
     Route: 050
     Dates: start: 20180805
  3. TECFIDERA [Suspect]
     Active Substance: DIMETHYL FUMARATE
     Route: 050
     Dates: start: 20180724
  4. TECFIDERA [Suspect]
     Active Substance: DIMETHYL FUMARATE
     Indication: MULTIPLE SCLEROSIS
     Dosage: QHS
     Route: 050
     Dates: start: 20180722

REACTIONS (8)
  - Off label use [Unknown]
  - Malaise [Unknown]
  - Nausea [Recovered/Resolved]
  - Accidental underdose [Unknown]
  - Vertigo [Recovered/Resolved]
  - Flushing [Unknown]
  - Dizziness [Unknown]
  - Product dose omission [Unknown]

NARRATIVE: CASE EVENT DATE: 20180725
